FAERS Safety Report 23381292 (Version 2)
Quarter: 2024Q2

REPORT INFORMATION
  Report Type: Spontaneous
  Country: US (occurrence: None)
  Receive Date: 20240109
  Receipt Date: 20240508
  Transmission Date: 20240716
  Serious: No
  Sender: FDA-Public Use
  Company Number: 2024A004770

PATIENT
  Age: 79 Year
  Sex: Male

DRUGS (15)
  1. BRILINTA [Suspect]
     Active Substance: TICAGRELOR
     Indication: Anticoagulant therapy
     Route: 048
  2. ROSUVASTATIN [Suspect]
     Active Substance: ROSUVASTATIN
     Route: 048
  3. METOPROLOL TARTRATE [Suspect]
     Active Substance: METOPROLOL TARTRATE
  4. CABOMETYX [Suspect]
     Active Substance: CABOZANTINIB S-MALATE
     Indication: Hepatic cancer
     Dosage: 40.0MG UNKNOWN
     Dates: start: 20230925, end: 202310
  5. CABOMETYX [Suspect]
     Active Substance: CABOZANTINIB S-MALATE
     Indication: Hepatic cancer
     Dosage: UNKNOWN
     Dates: start: 20231002, end: 202310
  6. CABOMETYX [Suspect]
     Active Substance: CABOZANTINIB S-MALATE
     Indication: Hepatic cancer
     Dosage: 40.0MG UNKNOWN
     Dates: start: 20231111
  7. CABOMETYX [Suspect]
     Active Substance: CABOZANTINIB S-MALATE
     Indication: Hepatic cancer
     Dosage: 40.0MG UNKNOWN
     Dates: start: 20231130
  8. ASPIRIN [Concomitant]
     Active Substance: ASPIRIN
  9. ROSUVASTATIN [Concomitant]
     Active Substance: ROSUVASTATIN
  10. ISOSORBIDE [Concomitant]
     Active Substance: ISOSORBIDE
  11. FUROSEMIDE [Concomitant]
     Active Substance: FUROSEMIDE
  12. POTASSIUM CHLORIDE [Concomitant]
     Active Substance: POTASSIUM CHLORIDE
  13. FINASTERIDE [Concomitant]
     Active Substance: FINASTERIDE
  14. METOPROLOL [Concomitant]
     Active Substance: METOPROLOL
  15. PLAVIX [Concomitant]
     Active Substance: CLOPIDOGREL BISULFATE

REACTIONS (11)
  - Constipation [Unknown]
  - Oral pain [Not Recovered/Not Resolved]
  - Dyspnoea [Unknown]
  - Rash [Recovered/Resolved]
  - Product prescribing issue [Unknown]
  - Wrong technique in product usage process [Unknown]
  - Off label use [Unknown]
  - Taste disorder [Not Recovered/Not Resolved]
  - Gastrointestinal motility disorder [Not Recovered/Not Resolved]
  - Diarrhoea [Not Recovered/Not Resolved]
  - Decreased appetite [Not Recovered/Not Resolved]
